FAERS Safety Report 12401382 (Version 1)
Quarter: 2016Q2

REPORT INFORMATION
  Report Type: Spontaneous
  Country: US (occurrence: US)
  Receive Date: 20160525
  Receipt Date: 20160525
  Transmission Date: 20160815
  Serious: Yes (Death)
  Sender: FDA-Public Use
  Company Number: US-PFIZER INC-2015180140

PATIENT
  Age: 76 Year
  Sex: Female

DRUGS (2)
  1. IBRANCE [Suspect]
     Active Substance: PALBOCICLIB
     Indication: LEIOMYOSARCOMA
     Dosage: 125 MG, TAKE ONE CAP DAILY X 21 DAYS, 7 DAYS OFF
     Route: 048
  2. IBRANCE [Suspect]
     Active Substance: PALBOCICLIB
     Dosage: 75 MG, CYCLIC (DAILY 21 ON, 7 OFF)
     Route: 048
     Dates: start: 20151014

REACTIONS (2)
  - Death [Fatal]
  - Product use issue [Unknown]
